FAERS Safety Report 4874753-2 (Version None)
Quarter: 2006Q1

REPORT INFORMATION
  Report Type: 
  Country: None (occurrence: None)
  Receive Date: 20060105
  Receipt Date: 20060105
  Transmission Date: 20060701
  Serious: Yes (Hospitalization)
  Sender: FDA-Public Use
  Company Number: None

PATIENT
  Sex: Male
  Weight: 85.8 kg

DRUGS (1)
  1. CELECOXIB [Suspect]
     Indication: ARTHRALGIA
     Dosage: 200 MG Q DAY PO
     Route: 048

REACTIONS (3)
  - FAECES DISCOLOURED [None]
  - HAEMATOCHEZIA [None]
  - RECTAL HAEMORRHAGE [None]
